FAERS Safety Report 23363061 (Version 1)
Quarter: 2024Q1

REPORT INFORMATION
  Report Type: Spontaneous
  Country: US (occurrence: US)
  Receive Date: 20240103
  Receipt Date: 20240103
  Transmission Date: 20240410
  Serious: No
  Sender: FDA-Public Use
  Company Number: US-PFIZER INC-202300457707

PATIENT
  Age: 24 Year
  Sex: Female

DRUGS (1)
  1. PAXLOVID [Suspect]
     Active Substance: NIRMATRELVIR\RITONAVIR
     Indication: COVID-19 treatment
     Dosage: UNK
     Dates: start: 20231226

REACTIONS (5)
  - Taste disorder [Unknown]
  - Parosmia [Unknown]
  - Dysgeusia [Unknown]
  - Glossodynia [Unknown]
  - Lip pain [Unknown]

NARRATIVE: CASE EVENT DATE: 20231201
